FAERS Safety Report 12814140 (Version 1)
Quarter: 2016Q4

REPORT INFORMATION
  Report Type: Spontaneous
  Country: US (occurrence: US)
  Receive Date: 20161005
  Receipt Date: 20161005
  Transmission Date: 20170207
  Serious: No
  Sender: FDA-Public Use
  Company Number: US-AMGEN-USASP2016048025

PATIENT
  Age: 64 Year
  Sex: Female

DRUGS (2)
  1. L-METHYLFOLATE [Concomitant]
  2. PROLIA [Suspect]
     Active Substance: DENOSUMAB
     Indication: PRODUCT USED FOR UNKNOWN INDICATION
     Dosage: UNK, UNK
     Route: 065
     Dates: start: 20160309

REACTIONS (2)
  - Skin warm [Unknown]
  - Rash papular [Unknown]

NARRATIVE: CASE EVENT DATE: 201604
